FAERS Safety Report 7569304-8 (Version None)
Quarter: 2011Q2

REPORT INFORMATION
  Report Type: 
  Country: None (occurrence: None)
  Receive Date: 20110623
  Receipt Date: 20110616
  Transmission Date: 20111010
  Serious: Yes (Hospitalization)
  Sender: FDA-Public Use
  Company Number: GB-PFIZER INC-2011045389

PATIENT
  Age: 62 Year
  Sex: Female
  Weight: 90 kg

DRUGS (7)
  1. VENLAFAXINE HCL [Suspect]
     Indication: DEPRESSION
  2. VENLAFAXINE HCL [Suspect]
     Indication: ANXIETY
     Dosage: 225 MG, UNK
     Route: 048
     Dates: start: 20100101, end: 20110120
  3. QUETIAPINE [Concomitant]
     Indication: ANXIETY
     Dosage: 25 MG, 2X/DAY
     Route: 048
     Dates: start: 20110112, end: 20110117
  4. MIRTAZAPINE [Concomitant]
     Indication: ANXIETY
     Dosage: 45 MG, 1X/DAY
     Route: 048
     Dates: start: 20101001, end: 20110117
  5. OMEPRAZOLE [Concomitant]
     Indication: HYPERCHLORHYDRIA
     Dosage: 20 MG, 1X/DAY
     Route: 048
  6. MIRTAZAPINE [Concomitant]
     Indication: DEPRESSION
  7. PREDNISOLONE [Concomitant]
     Indication: BRONCHOSPASM
     Dosage: 20 MG, 1X/DAY
     Route: 048
     Dates: start: 20101201, end: 20110124

REACTIONS (6)
  - HYPERHIDROSIS [None]
  - PYREXIA [None]
  - MYOCLONUS [None]
  - SEROTONIN SYNDROME [None]
  - BLOOD PRESSURE FLUCTUATION [None]
  - HYPERREFLEXIA [None]
